FAERS Safety Report 17102057 (Version 1)
Quarter: 2019Q4

REPORT INFORMATION
  Report Type: Report from Study
  Country: US (occurrence: US)
  Receive Date: 20191202
  Receipt Date: 20191202
  Transmission Date: 20200122
  Serious: Yes (Hospitalization)
  Sender: FDA-Public Use
  Company Number: NVSC2019US054619

PATIENT
  Sex: Male
  Weight: 61.2 kg

DRUGS (4)
  1. AMIKACIN. [Concomitant]
     Active Substance: AMIKACIN
     Indication: CYSTIC FIBROSIS
     Dosage: 590 MG
     Route: 055
     Dates: start: 20181111
  2. LAMPRENE [Suspect]
     Active Substance: CLOFAZIMINE
     Indication: MYCOBACTERIUM ABSCESSUS INFECTION
     Dosage: UNK
     Route: 048
     Dates: start: 20181219
  3. AZITHROMYCIN ANHYDROUS. [Concomitant]
     Active Substance: AZITHROMYCIN ANHYDROUS
     Indication: CYSTIC FIBROSIS
     Dosage: 500 MG
     Route: 065
     Dates: start: 20181111
  4. BACTRIM [Concomitant]
     Active Substance: SULFAMETHOXAZOLE\TRIMETHOPRIM
     Indication: SINUS OPERATION
     Route: 065

REACTIONS (4)
  - Weight increased [Unknown]
  - Forced expiratory volume decreased [Recovering/Resolving]
  - Sputum increased [Unknown]
  - Cough [Unknown]
